FAERS Safety Report 9724851 (Version 1)
Quarter: 2013Q4

REPORT INFORMATION
  Report Type: Spontaneous
  Country: US (occurrence: US)
  Receive Date: 20131202
  Receipt Date: 20131202
  Transmission Date: 20140711
  Serious: Yes (Congenital Anomaly, Other)
  Sender: FDA-Public Use
  Company Number: US-RB-061007-13

PATIENT
  Sex: 0

DRUGS (1)
  1. SUBUTEX [Suspect]
     Indication: DRUG DEPENDENCE
     Dosage: UNKNOWN DOSING DETAILS.
     Route: 064
     Dates: start: 2009

REACTIONS (2)
  - Foetal exposure during pregnancy [Recovered/Resolved]
  - Heart disease congenital [Unknown]
